FAERS Safety Report 4730765-0 (Version None)
Quarter: 2005Q3

REPORT INFORMATION
  Report Type: 
  Country: None (occurrence: None)
  Receive Date: 20050725
  Receipt Date: 20050516
  Transmission Date: 20060218
  Serious: No
  Sender: FDA-Public Use
  Company Number: USA050598184

PATIENT
  Sex: Female

DRUGS (3)
  1. STRATTERA [Suspect]
     Indication: ATTENTION DEFICIT/HYPERACTIVITY DISORDER
     Dosage: 60 MG
     Dates: end: 20050401
  2. WELLBUTRIN [Concomitant]
  3. ORAL CONTRACEPTIVE NOS [Concomitant]

REACTIONS (5)
  - DRY SKIN [None]
  - GUTTATE PSORIASIS [None]
  - RASH [None]
  - SCAB [None]
  - SKIN DEPIGMENTATION [None]
